FAERS Safety Report 4737376-1 (Version None)
Quarter: 2005Q3

REPORT INFORMATION
  Report Type: 
  Country: None (occurrence: None)
  Receive Date: 20050805
  Receipt Date: 20050725
  Transmission Date: 20060218
  Serious: Yes (Other)
  Sender: FDA-Public Use
  Company Number: 2005106606

PATIENT
  Sex: Female
  Weight: 58.0604 kg

DRUGS (6)
  1. FLAGYL [Suspect]
     Indication: URINARY TRACT INFECTION
     Dosage: (QID), ORAL
     Route: 048
     Dates: start: 20050709, end: 20050723
  2. ZESTRIL [Concomitant]
  3. TOPROL (METOPROLOL) [Concomitant]
  4. ASPIRIN [Concomitant]
  5. HEPARIN [Concomitant]
  6. SYNTHROID [Concomitant]

REACTIONS (5)
  - BODY TEMPERATURE INCREASED [None]
  - IRRITABILITY [None]
  - MOVEMENT DISORDER [None]
  - PAIN IN EXTREMITY [None]
  - WHITE BLOOD CELL COUNT INCREASED [None]
